FAERS Safety Report 11269394 (Version 1)
Quarter: 2015Q3

REPORT INFORMATION
  Report Type: Report from Study
  Country: DE (occurrence: DE)
  Receive Date: 20150714
  Receipt Date: 20150714
  Transmission Date: 20151125
  Serious: Yes (Hospitalization)
  Sender: FDA-Public Use
  Company Number: DE-ABBVIE-15K-062-1421242-00

PATIENT
  Age: 74 Year
  Sex: Female
  Weight: 66 kg

DRUGS (3)
  1. DECORTIN [Suspect]
     Active Substance: PREDNISONE
     Indication: RHEUMATOID ARTHRITIS
     Route: 048
     Dates: start: 200802
  2. MTX [Suspect]
     Active Substance: METHOTREXATE SODIUM
     Indication: RHEUMATOID ARTHRITIS
     Route: 048
     Dates: start: 201212
  3. HUMIRA [Suspect]
     Active Substance: ADALIMUMAB
     Indication: RHEUMATOID ARTHRITIS
     Route: 058
     Dates: start: 2011, end: 20140527

REACTIONS (15)
  - Aortic valve stenosis [Unknown]
  - Joint arthroplasty [Recovered/Resolved]
  - Joint arthroplasty [Recovered/Resolved]
  - Carotid arteriosclerosis [Unknown]
  - Red blood cell count decreased [Unknown]
  - Haemoglobin decreased [Unknown]
  - Blood lactate dehydrogenase increased [Unknown]
  - Brain natriuretic peptide increased [Unknown]
  - Gamma-glutamyltransferase increased [Unknown]
  - Mitral valve incompetence [Unknown]
  - Pulmonary hypertension [Unknown]
  - Blood cholesterol increased [Unknown]
  - Left ventricular hypertrophy [Unknown]
  - Diastolic dysfunction [Unknown]
  - Low density lipoprotein increased [Unknown]

NARRATIVE: CASE EVENT DATE: 20140603
